FAERS Safety Report 16931735 (Version 5)
Quarter: 2023Q4

REPORT INFORMATION
  Report Type: Report from Study
  Country: US (occurrence: US)
  Receive Date: 20191017
  Receipt Date: 20231006
  Transmission Date: 20240109
  Serious: Yes (Other)
  Sender: FDA-Public Use
  Company Number: US-SHIRE-US201934282

PATIENT
  Age: 72 Year
  Sex: Female

DRUGS (15)
  1. PARATHYROID HORMONE [Suspect]
     Active Substance: PARATHYROID HORMONE
     Indication: Hypocalcaemia
     Dosage: 50 MICROGRAM, QD
     Route: 058
     Dates: start: 20180301
  2. PARATHYROID HORMONE [Suspect]
     Active Substance: PARATHYROID HORMONE
     Indication: Hypocalcaemia
     Dosage: 50 MICROGRAM, QD
     Route: 058
     Dates: start: 20180301
  3. PARATHYROID HORMONE [Suspect]
     Active Substance: PARATHYROID HORMONE
     Indication: Hypocalcaemia
     Dosage: 50 MICROGRAM, QD
     Route: 058
     Dates: start: 20180301
  4. PARATHYROID HORMONE [Suspect]
     Active Substance: PARATHYROID HORMONE
     Indication: Hypoparathyroidism
     Dosage: 50 MICROGRAM, QD
     Route: 058
  5. PARATHYROID HORMONE [Suspect]
     Active Substance: PARATHYROID HORMONE
     Indication: Hypoparathyroidism
     Dosage: 50 MICROGRAM, QD
     Route: 058
  6. PARATHYROID HORMONE [Suspect]
     Active Substance: PARATHYROID HORMONE
     Indication: Hypoparathyroidism
     Dosage: 50 MICROGRAM, QD
     Route: 058
  7. PARATHYROID HORMONE [Suspect]
     Active Substance: PARATHYROID HORMONE
     Dosage: 50 MICROGRAM, QOD
     Route: 065
  8. PARATHYROID HORMONE [Suspect]
     Active Substance: PARATHYROID HORMONE
     Dosage: 50 MICROGRAM, QOD
     Route: 065
  9. PARATHYROID HORMONE [Suspect]
     Active Substance: PARATHYROID HORMONE
     Dosage: 50 MICROGRAM, QOD
     Route: 065
  10. PARATHYROID HORMONE [Suspect]
     Active Substance: PARATHYROID HORMONE
     Dosage: UNK UNK, QD
     Route: 058
     Dates: start: 20190827
  11. PARATHYROID HORMONE [Suspect]
     Active Substance: PARATHYROID HORMONE
     Dosage: UNK UNK, QD
     Route: 058
     Dates: start: 20190827
  12. PARATHYROID HORMONE [Suspect]
     Active Substance: PARATHYROID HORMONE
     Dosage: UNK UNK, QD
     Route: 058
     Dates: start: 20190827
  13. CYTOMEL [Suspect]
     Active Substance: LIOTHYRONINE SODIUM
     Indication: Hypothyroidism
     Dosage: UNK
     Route: 065
  14. CALCIUM [Concomitant]
     Active Substance: CALCIUM
     Indication: Hypocalcaemia
     Dosage: UNK
     Route: 065
  15. CALCIUM CITRATE [Concomitant]
     Active Substance: CALCIUM CITRATE
     Indication: Hypocalcaemia
     Dosage: UNK
     Route: 065

REACTIONS (10)
  - Pruritus [Unknown]
  - Hypocalcaemia [Unknown]
  - General physical health deterioration [Recovered/Resolved]
  - Renal function test abnormal [Recovered/Resolved]
  - Treatment noncompliance [Unknown]
  - Recalled product [Unknown]
  - Urticaria [Unknown]
  - COVID-19 [Recovering/Resolving]
  - Palpitations [Recovered/Resolved]
  - Expired product administered [Unknown]

NARRATIVE: CASE EVENT DATE: 20230929
